FAERS Safety Report 16582030 (Version 1)
Quarter: 2019Q3

REPORT INFORMATION
  Report Type: Spontaneous
  Country: US (occurrence: US)
  Receive Date: 20190717
  Receipt Date: 20190717
  Transmission Date: 20191004
  Serious: Yes (Other)
  Sender: FDA-Public Use
  Company Number: US-TEVA-2019-US-1076792

PATIENT
  Sex: Female

DRUGS (1)
  1. AUSTEDO [Suspect]
     Active Substance: DEUTETRABENAZINE
     Indication: HUNTINGTON^S DISEASE
     Dosage: 48 MILLIGRAM DAILY;
     Route: 065

REACTIONS (6)
  - Pneumonia [Unknown]
  - Aspiration [Unknown]
  - Oxygen saturation decreased [Unknown]
  - Therapy cessation [Unknown]
  - Endoscopy [Unknown]
  - Dysphagia [Unknown]
